FAERS Safety Report 6089636-2 (Version None)
Quarter: 2009Q1

REPORT INFORMATION
  Report Type: 
  Country: None (occurrence: None)
  Receive Date: 20090219
  Receipt Date: 20090219
  Transmission Date: 20090719
  Serious: Yes (Death, Life-Threatening, Hospitalization)
  Sender: FDA-Public Use
  Company Number: None

PATIENT
  Age: 79 Year
  Sex: Male

DRUGS (3)
  1. HEPARIN SODIUM [Suspect]
     Indication: DEEP VEIN THROMBOSIS
     Dosage: 23 ML PER HOUR IV
     Route: 042
     Dates: start: 20090121, end: 20090122
  2. HEPARIN SODIUM [Suspect]
     Indication: PROPHYLAXIS
     Dosage: 23 ML PER HOUR IV
     Route: 042
     Dates: start: 20090121, end: 20090122
  3. ENOXAPARIN SODIUM [Suspect]
     Dosage: 40 MG EVERY DAY IV
     Route: 042
     Dates: start: 20090121, end: 20090121

REACTIONS (14)
  - ACUTE MYOCARDIAL INFARCTION [None]
  - BREATH SOUNDS ABNORMAL [None]
  - ERYTHEMA [None]
  - HAEMATOCRIT DECREASED [None]
  - HAEMOGLOBIN DECREASED [None]
  - HEPARIN-INDUCED THROMBOCYTOPENIA [None]
  - LYMPHOCYTE PERCENTAGE INCREASED [None]
  - NEUTROPHIL PERCENTAGE INCREASED [None]
  - OEDEMA PERIPHERAL [None]
  - PURPURA [None]
  - RALES [None]
  - TACHYCARDIA [None]
  - UNRESPONSIVE TO STIMULI [None]
  - WHITE BLOOD CELL COUNT INCREASED [None]
